FAERS Safety Report 12691498 (Version 3)
Quarter: 2017Q4

REPORT INFORMATION
  Report Type: Report from Study
  Country: US (occurrence: US)
  Receive Date: 20160826
  Receipt Date: 20171010
  Transmission Date: 20180320
  Serious: Yes (Other)
  Sender: FDA-Public Use
  Company Number: US-ACTELION-A-NJ2015-124580

PATIENT
  Age: 70 Year
  Sex: Female
  Weight: 83.9 kg

DRUGS (6)
  1. DIOVAN [Concomitant]
     Active Substance: VALSARTAN
  2. SILDENAFIL. [Concomitant]
     Active Substance: SILDENAFIL
  3. TRACLEER [Suspect]
     Active Substance: BOSENTAN
     Indication: PULMONARY ARTERIAL HYPERTENSION
     Dosage: 125 MG, BID
     Route: 048
     Dates: start: 20100423
  4. VIAGRA [Concomitant]
     Active Substance: SILDENAFIL CITRATE
  5. NIFEDIPINE. [Concomitant]
     Active Substance: NIFEDIPINE
  6. ELIQUIS [Concomitant]
     Active Substance: APIXABAN

REACTIONS (8)
  - Dizziness [Unknown]
  - Infection [Unknown]
  - Gout [Unknown]
  - Blood pressure increased [Unknown]
  - Dyspnoea [Unknown]
  - Balance disorder [Unknown]
  - Anxiety [Unknown]
  - Hypotension [Unknown]
